FAERS Safety Report 6467027-X (Version None)
Quarter: 2009Q4

REPORT INFORMATION
  Report Type: 
  Country: None (occurrence: None)
  Receive Date: 20091118
  Receipt Date: 20090817
  Transmission Date: 20100525
  Serious: Yes (Hospitalization)
  Sender: FDA-Public Use
  Company Number: 2009BI025987

PATIENT
  Age: 69 Year
  Sex: Male

DRUGS (2)
  1. TYSABRI [Suspect]
     Indication: CROHN'S DISEASE
     Dosage: 300 MG; QM; IV
     Route: 042
     Dates: start: 20090310
  2. REMICADE [Concomitant]

REACTIONS (1)
  - PERICARDIAL EFFUSION [None]
